FAERS Safety Report 8816573 (Version 1)
Quarter: 2012Q4

REPORT INFORMATION
  Report Type: Spontaneous
  Country: US (occurrence: None)
  Receive Date: 20121001
  Receipt Date: 20121001
  Transmission Date: 20130627
  Serious: Yes (Life-Threatening, Hospitalization)
  Sender: FDA-Public Use
  Company Number: None

PATIENT
  Age: 26 Year
  Sex: Male
  Weight: 109.9 kg

DRUGS (1)
  1. BARIUM SULFATE [Suspect]
     Indication: ANGIOGRAPHY
     Route: 048

REACTIONS (5)
  - Cardio-respiratory arrest [None]
  - Contrast media reaction [None]
  - Anaphylactic reaction [None]
  - Angioedema [None]
  - Respiratory depression [None]
